FAERS Safety Report 10215210 (Version 2)
Quarter: 2014Q3

REPORT INFORMATION
  Report Type: Spontaneous
  Country: JP (occurrence: JP)
  Receive Date: 20140603
  Receipt Date: 20140804
  Transmission Date: 20150326
  Serious: Yes (Other)
  Sender: FDA-Public Use
  Company Number: PHHY2014JP066881

PATIENT
  Age: 41 Year
  Sex: Male

DRUGS (4)
  1. GLIVEC [Suspect]
     Active Substance: IMATINIB MESYLATE
     Indication: BLAST CRISIS IN MYELOGENOUS LEUKAEMIA
     Dosage: 600 MG, DAILY
     Route: 048
     Dates: start: 20140503, end: 20140509
  2. SPRYCEL [Suspect]
     Active Substance: DASATINIB
     Dosage: 140 MG, DAILY
     Route: 048
     Dates: start: 20140515, end: 20140517
  3. SPRYCEL [Suspect]
     Active Substance: DASATINIB
     Dosage: UNK UKN, UNK
     Dates: start: 20140619
  4. SPRYCEL [Suspect]
     Active Substance: DASATINIB
     Dosage: 100 MG, DAILY
     Route: 048
     Dates: start: 20140518, end: 20140605

REACTIONS (1)
  - Liver disorder [Not Recovered/Not Resolved]

NARRATIVE: CASE EVENT DATE: 20140509
